APPROVED DRUG PRODUCT: LEVETIRACETAM
Active Ingredient: LEVETIRACETAM
Strength: 750MG
Dosage Form/Route: TABLET;ORAL
Application: A078960 | Product #002
Applicant: TARO PHARMACEUTICAL INDUSTRIES LTD
Approved: Feb 1, 2010 | RLD: No | RS: No | Type: DISCN